FAERS Safety Report 8560600-4 (Version None)
Quarter: 2012Q3

REPORT INFORMATION
  Report Type: 
  Country: None (occurrence: None)
  Receive Date: 20120802
  Receipt Date: 20100630
  Transmission Date: 20120928
  Serious: Yes (Hospitalization, Other)
  Sender: FDA-Public Use
  Company Number: US-BAYER-200938967NA

PATIENT
  Age: 38 Year
  Sex: Female
  Weight: 113.38 kg

DRUGS (13)
  1. NAPROXEN (ALEVE) [Concomitant]
     Route: 065
  2. IBUPROFEN (ADVIL) [Concomitant]
  3. DILAUDID [Concomitant]
     Indication: PAIN
     Route: 042
  4. MILK OF MAGNESIA TAB [Concomitant]
  5. YASMIN [Suspect]
     Indication: PRODUCT USED FOR UNKNOWN INDICATION
     Route: 048
     Dates: start: 20070601, end: 20080505
  6. ACETAMINOPHEN [Concomitant]
  7. HYDROCHLOROTHIAZIDE [Concomitant]
     Route: 065
     Dates: start: 20060101
  8. RESTORIL [Concomitant]
  9. YAZ [Suspect]
     Indication: PRODUCT USED FOR UNKNOWN INDICATION
     Route: 048
     Dates: start: 20070601, end: 20080505
  10. PERCOCET [Concomitant]
  11. IBUPROFEN [Concomitant]
     Route: 065
  12. COLACE [Concomitant]
  13. OXYCET [Concomitant]

REACTIONS (10)
  - ABDOMINAL PAIN [None]
  - ATELECTASIS [None]
  - HAEMOPTYSIS [None]
  - GASTROINTESTINAL INJURY [None]
  - CHOLECYSTITIS CHRONIC [None]
  - DEEP VEIN THROMBOSIS [None]
  - INTRACARDIAC THROMBUS [None]
  - POST PROCEDURAL DISCOMFORT [None]
  - CHOLELITHIASIS [None]
  - OEDEMA PERIPHERAL [None]
